FAERS Safety Report 8212307-0 (Version None)
Quarter: 2012Q1

REPORT INFORMATION
  Report Type: 
  Country: None (occurrence: None)
  Receive Date: 20120315
  Receipt Date: 20120312
  Transmission Date: 20120608
  Serious: Yes (Death, Hospitalization)
  Sender: FDA-Public Use
  Company Number: US-ACTELION-A-NJ2011-44115

PATIENT

DRUGS (2)
  1. TRACLEER [Suspect]
     Indication: PULMONARY ARTERIAL HYPERTENSION
     Dosage: 62.5 MG, BID
     Route: 048
     Dates: start: 20080126, end: 20110101
  2. CALCIUM CHANNEL BLOCKERS [Concomitant]

REACTIONS (4)
  - DEATH [None]
  - CARDIAC FAILURE [None]
  - DYSPNOEA [None]
  - FLUID RETENTION [None]
